FAERS Safety Report 5655683-5 (Version None)
Quarter: 2008Q1

REPORT INFORMATION
  Report Type: 
  Country: None (occurrence: None)
  Receive Date: 20080307
  Receipt Date: 20080226
  Transmission Date: 20080703
  Serious: Yes (Hospitalization)
  Sender: FDA-Public Use
  Company Number: FR-WYE-H02937908

PATIENT
  Age: 48 Year
  Sex: Male

DRUGS (2)
  1. EUPANTOL [Suspect]
     Dosage: DOSE FORM AND FREQUENCY NOT SPECIFIED
     Route: 048
     Dates: start: 20071102, end: 20071112
  2. RULID [Suspect]
     Dosage: DOSE FORM AND FREQUENCY NOT SPECIFIED
     Route: 048
     Dates: start: 20071019, end: 20071029

REACTIONS (2)
  - MUCOUS MEMBRANE DISORDER [None]
  - STEVENS-JOHNSON SYNDROME [None]
